FAERS Safety Report 21157413 (Version 1)
Quarter: 2022Q3

REPORT INFORMATION
  Report Type: Spontaneous
  Country: US (occurrence: US)
  Receive Date: 20220801
  Receipt Date: 20220801
  Transmission Date: 20221027
  Serious: No
  Sender: FDA-Public Use
  Company Number: US-MYOVANT SCIENCES GMBH-2022MYSCI0300753

PATIENT
  Age: 58 Year
  Sex: Female
  Weight: 81.723 kg

DRUGS (1)
  1. MYFEMBREE [Suspect]
     Active Substance: ESTRADIOL HEMIHYDRATE\NORETHINDRONE ACETATE\RELUGOLIX
     Indication: Uterine leiomyoma
     Dosage: UNK
     Route: 065
     Dates: start: 20220101, end: 20220322

REACTIONS (3)
  - Apathy [Unknown]
  - Anger [Recovered/Resolved]
  - Loss of libido [Unknown]

NARRATIVE: CASE EVENT DATE: 20220101
